FAERS Safety Report 9497493 (Version 3)
Quarter: 2013Q4

REPORT INFORMATION
  Report Type: Spontaneous
  Country: US (occurrence: US)
  Receive Date: 20130904
  Receipt Date: 20131106
  Transmission Date: 20140711
  Serious: Yes (Other)
  Sender: FDA-Public Use
  Company Number: US-AMGEN-USASP2013054052

PATIENT
  Age: 24 Year
  Sex: Male
  Weight: 72.11 kg

DRUGS (5)
  1. ENBREL [Suspect]
     Indication: PSORIATIC ARTHROPATHY
     Dosage: 50 MG, 2 TIMES/WK
     Route: 058
     Dates: start: 20130125
  2. ENBREL [Suspect]
     Indication: PSORIASIS
  3. TYLENOL WITH CODEIN #3 [Suspect]
     Indication: PAIN
     Dosage: 1 DF, TID
     Route: 048
  4. CLOBETASOL [Concomitant]
     Indication: PSORIASIS
     Dosage: UNK UNK, BID
     Route: 061
  5. KEPPRA [Concomitant]
     Dosage: 500 MG, BID
     Route: 048

REACTIONS (1)
  - Convulsion [Recovered/Resolved]
